FAERS Safety Report 9701994 (Version 1)
Quarter: 2013Q4

REPORT INFORMATION
  Report Type: Report from Study
  Country: US (occurrence: US)
  Receive Date: 20131121
  Receipt Date: 20131121
  Transmission Date: 20140711
  Serious: Yes (Death)
  Sender: FDA-Public Use
  Company Number: US-OTSUKA-US-2013-12161

PATIENT
  Age: 67 Year
  Sex: Male

DRUGS (4)
  1. BUSULFEX [Suspect]
     Indication: MYELODYSPLASTIC SYNDROME
     Dosage: 262 MG MILLIGRAM(S), DAILY DOSE
     Route: 041
     Dates: start: 20060113, end: 20060116
  2. FLUDARABINE [Suspect]
     Indication: MYELODYSPLASTIC SYNDROME
     Dosage: 50 MG MILLIGRAM(S), DAILY DOSE
     Route: 041
     Dates: start: 20060112, end: 20060116
  3. ALEMTUZUMAB [Suspect]
     Indication: MYELODYSPLASTIC SYNDROME
     Dosage: 20 MG MILLIGRAM(S), DAILY DOSE
     Route: 041
     Dates: start: 20060112, end: 20060116
  4. CLONAZEPAM [Suspect]
     Indication: CONVULSION PROPHYLAXIS
     Dosage: UNK
     Route: 048

REACTIONS (1)
  - Hepatic failure [Fatal]
